FAERS Safety Report 9417040 (Version 1)
Quarter: 2013Q3

REPORT INFORMATION
  Report Type: Spontaneous
  Country: SK (occurrence: SK)
  Receive Date: 20130724
  Receipt Date: 20130724
  Transmission Date: 20140515
  Serious: Yes (Hospitalization)
  Sender: FDA-Public Use
  Company Number: SK-JNJFOC-20130710519

PATIENT
  Age: 64 Year
  Sex: Female
  Weight: 82 kg

DRUGS (6)
  1. SIMPONI [Suspect]
     Indication: RHEUMATOID ARTHRITIS
     Route: 058
     Dates: start: 20120124, end: 20130518
  2. DUSPATALIN [Concomitant]
     Indication: DIVERTICULUM
     Route: 048
     Dates: start: 2009
  3. AFLAMIN [Concomitant]
     Indication: RHEUMATOID ARTHRITIS
     Route: 048
     Dates: start: 2013, end: 20130610
  4. HELICID [Concomitant]
     Indication: GASTRIC DISORDER
     Route: 048
     Dates: start: 2009
  5. METOJECT [Concomitant]
     Indication: RHEUMATOID ARTHRITIS
     Route: 048
     Dates: start: 2010, end: 20130610
  6. ACIDUM FOLICUM [Concomitant]
     Route: 048
     Dates: start: 2010

REACTIONS (2)
  - Rash maculo-papular [Recovered/Resolved]
  - Skin necrosis [Recovered/Resolved]
